FAERS Safety Report 8018009-8 (Version None)
Quarter: 2012Q1

REPORT INFORMATION
  Report Type: 
  Country: None (occurrence: None)
  Receive Date: 20120103
  Receipt Date: 20111229
  Transmission Date: 20120608
  Serious: Yes (Life-Threatening, Disabling)
  Sender: FDA-Public Use
  Company Number: GB-AMGEN-GBRSP2011069555

PATIENT
  Sex: Female

DRUGS (2)
  1. ANTINEOPLASTIC AGENTS [Concomitant]
     Route: 042
  2. NEUPOGEN [Suspect]
     Indication: NEUTROPHIL COUNT DECREASED
     Dosage: 300 MUG, UNK
     Route: 058
     Dates: start: 20111123, end: 20111123

REACTIONS (7)
  - DYSPNOEA [None]
  - COLD SWEAT [None]
  - LOSS OF CONSCIOUSNESS [None]
  - SYNCOPE [None]
  - ERYTHEMA [None]
  - VOMITING [None]
  - HYPOTENSION [None]
